FAERS Safety Report 10628085 (Version 1)
Quarter: 2014Q4

REPORT INFORMATION
  Report Type: Spontaneous
  Country: US (occurrence: US)
  Receive Date: 20141205
  Receipt Date: 20141205
  Transmission Date: 20150529
  Serious: No
  Sender: FDA-Public Use
  Company Number: US-BRISTOL-MYERS SQUIBB COMPANY-20976908

PATIENT
  Sex: Female

DRUGS (2)
  1. COUMADIN [Suspect]
     Active Substance: WARFARIN SODIUM
  2. BUTRANS [Suspect]
     Active Substance: BUPRENORPHINE

REACTIONS (4)
  - Rash [Unknown]
  - International normalised ratio fluctuation [Unknown]
  - Application site rash [Unknown]
  - Thermal burn [Unknown]
